FAERS Safety Report 17136721 (Version 4)
Quarter: 2021Q3

REPORT INFORMATION
  Report Type: Report from Study
  Country: JP (occurrence: JP)
  Receive Date: 20191210
  Receipt Date: 20210928
  Transmission Date: 20211014
  Serious: Yes (Death)
  Sender: FDA-Public Use
  Company Number: JP-JNJFOC-20191210544

PATIENT
  Age: 75 Year
  Sex: Female
  Weight: 41 kg

DRUGS (6)
  1. DARZALEX [Suspect]
     Active Substance: DARATUMUMAB
     Indication: PLASMA CELL MYELOMA
     Route: 041
     Dates: start: 20171206, end: 20171206
  2. LENALIDOMIDE HYDRATE [Concomitant]
     Active Substance: LENALIDOMIDE
     Indication: PLASMA CELL MYELOMA
     Route: 048
     Dates: start: 20171206, end: 20171209
  3. MEROPENEM. [Concomitant]
     Active Substance: MEROPENEM
     Indication: WHITE BLOOD CELL COUNT DECREASED
     Route: 065
     Dates: start: 20171210, end: 20171210
  4. TEICOPLANIN [Concomitant]
     Active Substance: TEICOPLANIN
     Indication: WHITE BLOOD CELL COUNT DECREASED
     Route: 065
     Dates: start: 20171210, end: 20171210
  5. FILGRASTIM(GENETICAL RECOMBINATION) [Concomitant]
     Active Substance: FILGRASTIM
     Indication: WHITE BLOOD CELL COUNT DECREASED
     Route: 065
     Dates: start: 20171127, end: 20171210
  6. DEXAMETHASONE. [Concomitant]
     Active Substance: DEXAMETHASONE
     Indication: PLASMA CELL MYELOMA
     Route: 065
     Dates: start: 20171206, end: 20171206

REACTIONS (2)
  - White blood cell count decreased [Fatal]
  - Septic shock [Fatal]

NARRATIVE: CASE EVENT DATE: 20171210
